FAERS Safety Report 7550669-8 (Version None)
Quarter: 2011Q2

REPORT INFORMATION
  Report Type: 
  Country: None (occurrence: None)
  Receive Date: 20110609
  Receipt Date: 20110524
  Transmission Date: 20111010
  Serious: Yes (Hospitalization)
  Sender: FDA-Public Use
  Company Number: 2011MA006469

PATIENT
  Age: 65 Year
  Sex: Male

DRUGS (1)
  1. GABAPENTIN [Suspect]
     Indication: MYASTHENIA GRAVIS
     Dosage: 300 MG; TID;

REACTIONS (13)
  - CHEST DISCOMFORT [None]
  - VERTEBRAL FORAMINAL STENOSIS [None]
  - CONDITION AGGRAVATED [None]
  - TONGUE DISORDER [None]
  - CARPAL TUNNEL SYNDROME [None]
  - MYASTHENIA GRAVIS [None]
  - PARAESTHESIA [None]
  - HYPERSENSITIVITY [None]
  - CEREBRAL SMALL VESSEL ISCHAEMIC DISEASE [None]
  - VOMITING [None]
  - BODY TEMPERATURE FLUCTUATION [None]
  - EXOSTOSIS [None]
  - RADICULOPATHY [None]
